FAERS Safety Report 21866528 (Version 1)
Quarter: 2023Q1

REPORT INFORMATION
  Report Type: Spontaneous
  Country: US (occurrence: US)
  Receive Date: 20230116
  Receipt Date: 20230116
  Transmission Date: 20230418
  Serious: No
  Sender: FDA-Public Use
  Company Number: US-INTRA-CELLULAR THERAPIES, INC.-2022ICT01727

PATIENT
  Age: 46 Year
  Sex: Female

DRUGS (1)
  1. CAPLYTA [Suspect]
     Active Substance: LUMATEPERONE
     Indication: Bipolar II disorder
     Dosage: 42 MG, 1X/DAY
     Dates: start: 20221202, end: 20221202

REACTIONS (7)
  - Dysstasia [Recovered/Resolved]
  - Blood pressure decreased [Recovered/Resolved]
  - Burning sensation [Recovered/Resolved]
  - Confusional state [Recovered/Resolved]
  - Disorientation [Recovered/Resolved]
  - Dehydration [Recovered/Resolved]
  - Gait disturbance [Recovered/Resolved]

NARRATIVE: CASE EVENT DATE: 20221202
